FAERS Safety Report 7030039-1 (Version None)
Quarter: 2010Q4

REPORT INFORMATION
  Report Type: 
  Country: None (occurrence: None)
  Receive Date: 20101006
  Receipt Date: 20100927
  Transmission Date: 20110411
  Serious: Yes (Hospitalization)
  Sender: FDA-Public Use
  Company Number: US-JNJFOC-20100105707

PATIENT
  Age: 50 Year
  Sex: Male
  Weight: 113.4 kg

DRUGS (6)
  1. EXTRA STRENGTH TYLENOL [Suspect]
     Indication: ARTHRALGIA
     Dosage: 1000 MG EVERY ONCE DAILY IN THE EVENING EVERY 3 OR 4 DAYS
     Route: 048
  2. EXTRA STRENGTH TYLENOL [Suspect]
     Dosage: ^AS DIRECTED ON THE BOTTLE^
     Route: 048
  3. EXTRA STRENGTH TYLENOL [Suspect]
     Indication: MUSCULOSKELETAL PAIN
     Dosage: 1000 MG EVERY ONCE DAILY IN THE EVENING EVERY 3 OR 4 DAYS
     Route: 048
  4. EXTRA STRENGTH TYLENOL [Suspect]
     Dosage: ^AS DIRECTED ON THE BOTTLE^
     Route: 048
  5. EXTRA STRENGTH TYLENOL [Suspect]
     Indication: TOOTHACHE
     Dosage: ^AS DIRECTED ON THE BOTTLE^
     Route: 048
  6. EXTRA STRENGTH TYLENOL [Suspect]
     Dosage: 1000 MG EVERY ONCE DAILY IN THE EVENING EVERY 3 OR 4 DAYS
     Route: 048

REACTIONS (4)
  - CHEST PAIN [None]
  - CHOKING SENSATION [None]
  - ELECTROCARDIOGRAM ABNORMAL [None]
  - PRODUCT ODOUR ABNORMAL [None]
